FAERS Safety Report 5832773-5 (Version None)
Quarter: 2008Q3

REPORT INFORMATION
  Report Type: 
  Country: None (occurrence: None)
  Receive Date: 20080804
  Receipt Date: 20080724
  Transmission Date: 20090109
  Serious: Yes (Other)
  Sender: FDA-Public Use
  Company Number: US-JNJFOC-20080706446

PATIENT
  Age: 75 Year
  Sex: Female
  Weight: 48.54 kg

DRUGS (2)
  1. EXTRA STRENGTH TYLENOL [Suspect]
  2. EXTRA STRENGTH TYLENOL [Suspect]
     Indication: ARTHRITIS

REACTIONS (3)
  - FEELING ABNORMAL [None]
  - HYPOAESTHESIA [None]
  - MEDICATION TAMPERING [None]
